FAERS Safety Report 5049441-2 (Version None)
Quarter: 2006Q3

REPORT INFORMATION
  Report Type: 
  Country: None (occurrence: None)
  Receive Date: 20060712
  Receipt Date: 20060407
  Transmission Date: 20061208
  Serious: Yes (Hospitalization)
  Sender: FDA-Public Use
  Company Number: US-ROCHE-443845

PATIENT
  Age: 56 Year
  Sex: Female

DRUGS (9)
  1. PEGASYS [Suspect]
     Dosage: ROUTE REPORTED AS ^INJ^.
     Route: 050
     Dates: start: 20060303, end: 20060407
  2. PEGASYS [Suspect]
     Dosage: ROUTE REPORTED AS ^INJ^.
     Route: 050
     Dates: start: 20060407, end: 20060414
  3. PEGASYS [Suspect]
     Route: 050
     Dates: start: 20060526, end: 20060609
  4. COPEGUS [Suspect]
     Dosage: DOSAGE REGIMEN REPORTED AS 3 IN AM, 2 IN PM.
     Route: 048
     Dates: start: 20060303, end: 20060403
  5. COPEGUS [Suspect]
     Dosage: 2 IN AN, 2 IN PM.
     Route: 048
     Dates: start: 20060403, end: 20060414
  6. COPEGUS [Suspect]
     Route: 048
     Dates: start: 20060526, end: 20060614
  7. EFFEXOR [Concomitant]
     Indication: ANTIDEPRESSANT THERAPY
  8. CELEXA [Concomitant]
     Indication: ANTIDEPRESSANT THERAPY
  9. ALEVE (CAPLET) [Concomitant]
     Route: 048

REACTIONS (19)
  - ANXIETY [None]
  - CALCINOSIS [None]
  - CRYING [None]
  - DRY MOUTH [None]
  - EMOTIONAL DISORDER [None]
  - FATIGUE [None]
  - IRRITABILITY [None]
  - MOOD SWINGS [None]
  - MUSCULOSKELETAL STIFFNESS [None]
  - MYALGIA [None]
  - NAUSEA [None]
  - NEUTROPENIA [None]
  - PAIN [None]
  - SKIN DISORDER [None]
  - THINKING ABNORMAL [None]
  - TREMOR [None]
  - VERTIGO POSITIONAL [None]
  - VOMITING [None]
  - WEIGHT INCREASED [None]
